FAERS Safety Report 17979833 (Version 2)
Quarter: 2020Q3

REPORT INFORMATION
  Report Type: Report from Study
  Country: ES (occurrence: ES)
  Receive Date: 20200703
  Receipt Date: 20200825
  Transmission Date: 20201103
  Serious: Yes (Hospitalization, Other)
  Sender: FDA-Public Use
  Company Number: ES-MYLANLABS-2020M1059652

PATIENT
  Age: 56 Year
  Sex: Male
  Weight: 132 kg

DRUGS (6)
  1. METFORMIN [Suspect]
     Active Substance: METFORMIN HYDROCHLORIDE
     Indication: TYPE 2 DIABETES MELLITUS
     Dosage: 2 DOSAGE FORM, BID ((1?0?1), BID)
     Route: 048
  2. METFORMIN [Suspect]
     Active Substance: METFORMIN HYDROCHLORIDE
     Dosage: UNK (DOSE INCREASED)
  3. NOVORAPID [Suspect]
     Active Substance: INSULIN ASPART
     Dosage: DOSE INCREASED
  4. INSULIN GLARGINE [Suspect]
     Active Substance: INSULIN GLARGINE
     Indication: TYPE 2 DIABETES MELLITUS
     Dosage: 56 INTERNATIONAL UNIT (56 IU)
     Route: 058
     Dates: start: 202005
  5. INSULIN GLARGINE [Suspect]
     Active Substance: INSULIN GLARGINE
     Dosage: DOSE INCREASED, UNK
  6. NOVORAPID [Suspect]
     Active Substance: INSULIN ASPART
     Indication: TYPE 2 DIABETES MELLITUS
     Dosage: UNK UNK, TID, ((4?8?4) IU, TID )
     Route: 058

REACTIONS (7)
  - Medication error [Unknown]
  - Fluid retention [Recovered/Resolved]
  - Pancreatic disorder [Recovered/Resolved]
  - Blood pressure increased [Recovered/Resolved]
  - Intentional product misuse [Unknown]
  - Blood glucose increased [Not Recovered/Not Resolved]
  - Multiple use of single-use product [Unknown]

NARRATIVE: CASE EVENT DATE: 2020
